FAERS Safety Report 17666262 (Version 1)
Quarter: 2020Q3

REPORT INFORMATION
  Report Type: Spontaneous
  Country: KR (occurrence: KR)
  Receive Date: 20200414
  Receipt Date: 20200414
  Transmission Date: 20201105
  Serious: Yes (Other)
  Sender: FDA-Public Use
  Company Number: KR-BAXTER-2020BAX007591

PATIENT
  Age: 72 Year
  Sex: Male

DRUGS (14)
  1. ALIMTA [Suspect]
     Active Substance: PEMETREXED DISODIUM
     Dosage: 2 CYCLES
     Route: 065
     Dates: start: 201407, end: 201408
  2. BRIGATINIB [Suspect]
     Active Substance: BRIGATINIB
     Indication: LUNG ADENOCARCINOMA
     Route: 065
     Dates: start: 201910, end: 202003
  3. JANUMET [Concomitant]
     Active Substance: METFORMIN HYDROCHLORIDE\SITAGLIPTIN PHOSPHATE
     Indication: PRODUCT USED FOR UNKNOWN INDICATION
     Dosage: TABLET, 50 MG/500 MG
     Route: 048
  4. TAXOTERE [Suspect]
     Active Substance: DOCETAXEL
     Dosage: ADJUVANT TC REGIMEN, 3 CYCLES
     Route: 065
     Dates: start: 200610, end: 200704
  5. GEMZAR [Suspect]
     Active Substance: GEMCITABINE HYDROCHLORIDE
     Indication: LUNG ADENOCARCINOMA
     Dosage: 6 CYCLES
     Route: 065
     Dates: end: 201412
  6. VASTINAN MR [Concomitant]
     Indication: PRODUCT USED FOR UNKNOWN INDICATION
     Dosage: TABLET
     Route: 048
  7. TAXOTERE [Suspect]
     Active Substance: DOCETAXEL
     Indication: LUNG ADENOCARCINOMA
     Dosage: NEO ADJUVANT TC REGIMEN, 3 CYCLES
     Route: 065
  8. ALIMTA [Suspect]
     Active Substance: PEMETREXED DISODIUM
     Indication: LUNG ADENOCARCINOMA
     Dosage: 24 CYCLES
     Route: 065
     Dates: end: 201305
  9. CRIZOTINIB [Suspect]
     Active Substance: CRIZOTINIB
     Indication: LUNG ADENOCARCINOMA
     Route: 065
     Dates: start: 201503, end: 201910
  10. ALECTINIB. [Suspect]
     Active Substance: ALECTINIB
     Indication: LUNG ADENOCARCINOMA
     Route: 065
  11. ENDOXAN 500MG INJ. (CYCLOPHOSPHAMIDE) [Suspect]
     Active Substance: CYCLOPHOSPHAMIDE
     Indication: LUNG ADENOCARCINOMA
     Dosage: NEO ADJUVANT TC REGIMEN, 3 CYCLES
     Route: 065
  12. ENDOXAN 500MG INJ. (CYCLOPHOSPHAMIDE) [Suspect]
     Active Substance: CYCLOPHOSPHAMIDE
     Dosage: ADJUVANT TC REGIMEN, 3 CYCLES
     Route: 065
     Dates: start: 200610, end: 200704
  13. CONBLOC [Concomitant]
     Indication: PRODUCT USED FOR UNKNOWN INDICATION
     Dosage: TABLET
     Route: 048
  14. CISPLATIN. [Suspect]
     Active Substance: CISPLATIN
     Indication: LUNG ADENOCARCINOMA
     Dosage: 24 CYCLES
     Route: 065
     Dates: end: 201305

REACTIONS (7)
  - Infective spondylitis [Recovered/Resolved]
  - Therapy partial responder [Unknown]
  - Myocardial infarction [Unknown]
  - Disease progression [Unknown]
  - Metastases to gastrointestinal tract [Unknown]
  - Metastases to spleen [Unknown]
  - Pancreatic mass [Unknown]

NARRATIVE: CASE EVENT DATE: 2006
